FAERS Safety Report 12268967 (Version 1)
Quarter: 2016Q2

REPORT INFORMATION
  Report Type: Spontaneous
  Country: GB (occurrence: GB)
  Receive Date: 20160414
  Receipt Date: 20160414
  Transmission Date: 20160815
  Serious: Yes (Other)
  Sender: FDA-Public Use
  Company Number: GB-PFIZER INC-2016202129

PATIENT
  Age: 78 Year
  Sex: Female
  Weight: 74 kg

DRUGS (12)
  1. BUMETANIDE. [Concomitant]
     Active Substance: BUMETANIDE
     Dosage: 1 DF, EACH MORNING
     Dates: start: 20151027, end: 20160302
  2. TRIMETHOPRIM. [Concomitant]
     Active Substance: TRIMETHOPRIM
     Dosage: 1 DF, 2X/DAY
     Dates: start: 20160310, end: 20160313
  3. ATORVASTATIN CALCIUM. [Suspect]
     Active Substance: ATORVASTATIN CALCIUM
     Dosage: UNK
     Dates: start: 20160302
  4. FOLIC ACID. [Concomitant]
     Active Substance: FOLIC ACID
     Dosage: 1 DF, 1X/DAY
     Dates: start: 20160205
  5. ASPIRIN. [Concomitant]
     Active Substance: ASPIRIN
     Dosage: 1 DF, 1X/DAY
     Dates: start: 20141117
  6. BISOPROLOL [Concomitant]
     Active Substance: BISOPROLOL
     Dosage: 1 DF, 1X/DAY
     Dates: start: 20160302
  7. OLIVE OIL [Concomitant]
     Active Substance: OLIVE OIL
     Dosage: UNK
     Dates: start: 20160304, end: 20160318
  8. VENTOLIN [Concomitant]
     Active Substance: ALBUTEROL SULFATE
     Dosage: 2 DF, UNK
     Route: 055
     Dates: start: 20151027
  9. CALCIUM CARBONATE. [Concomitant]
     Active Substance: CALCIUM CARBONATE
     Dosage: 2 DF, 2X/DAY
     Dates: start: 20151124
  10. INADINE [Concomitant]
     Dosage: UNK
     Dates: start: 20160216, end: 20160315
  11. PARACETAMOL [Concomitant]
     Active Substance: ACETAMINOPHEN
     Dosage: 2 DF, 4X/DAY
     Dates: start: 20150210
  12. TEMAZEPAM. [Concomitant]
     Active Substance: TEMAZEPAM
     Dosage: 1-2 AT NIGHT
     Dates: start: 20150728

REACTIONS (1)
  - Hallucination [Recovered/Resolved]

NARRATIVE: CASE EVENT DATE: 20160329
